FAERS Safety Report 6360101-8 (Version None)
Quarter: 2009Q3

REPORT INFORMATION
  Report Type: 
  Country: None (occurrence: None)
  Receive Date: 20090917
  Receipt Date: 20090911
  Transmission Date: 20100115
  Serious: Yes (Hospitalization)
  Sender: FDA-Public Use
  Company Number: PHHO2009DE11285

PATIENT
  Sex: Female
  Weight: 85 kg

DRUGS (4)
  1. ZOLEDRONIC ACID [Suspect]
     Indication: BREAST CANCER
     Dosage: 4 MG, EVERY 3 MONTHS FOR 2 YEARS
     Route: 042
  2. ARIMIDEX [Suspect]
     Indication: BREAST CANCER
     Dosage: 1 MG, UNK
     Route: 048
  3. VITAMIN D [Concomitant]
     Dosage: UNK
  4. CALCIUM [Concomitant]

REACTIONS (1)
  - ERYSIPELAS [None]
